FAERS Safety Report 8469283-5 (Version None)
Quarter: 2012Q2

REPORT INFORMATION
  Report Type: 
  Country: None (occurrence: None)
  Receive Date: 20120626
  Receipt Date: 20120619
  Transmission Date: 20120825
  Serious: Yes (Hospitalization)
  Sender: FDA-Public Use
  Company Number: IT-ELI_LILLY_AND_COMPANY-IT201206006342

PATIENT
  Sex: Female

DRUGS (3)
  1. BENZODIAZEPINE RELATED DRUGS [Concomitant]
  2. CORTICOSTEROIDS [Concomitant]
  3. ALIMTA [Suspect]
     Dosage: 500 UNK, UNK

REACTIONS (3)
  - PETECHIAE [None]
  - THROMBOCYTOPENIA [None]
  - HAEMORRHAGE [None]
